FAERS Safety Report 5789873-8 (Version None)
Quarter: 2008Q2

REPORT INFORMATION
  Report Type: 
  Country: None (occurrence: None)
  Receive Date: 20080626
  Receipt Date: 20080611
  Transmission Date: 20081010
  Serious: Yes (Hospitalization, Disabling, Other)
  Sender: FDA-Public Use
  Company Number: US-BRISTOL-MYERS SQUIBB COMPANY-14223291

PATIENT
  Age: 46 Year
  Sex: Female

DRUGS (9)
  1. ATAZANAVIR [Suspect]
     Indication: ACQUIRED IMMUNODEFICIENCY SYNDROME
     Route: 048
     Dates: start: 20080317, end: 20080101
  2. TRUVADA [Interacting]
     Indication: ACQUIRED IMMUNODEFICIENCY SYNDROME
     Route: 048
     Dates: start: 20080310, end: 20080321
  3. RITONAVIR [Interacting]
     Indication: ACQUIRED IMMUNODEFICIENCY SYNDROME
     Route: 048
     Dates: start: 20080317, end: 20080101
  4. VALGANCICLOVIR HCL [Interacting]
     Indication: CYTOMEGALOVIRUS CHORIORETINITIS
     Dosage: STOPPED DUE TO EVENT AND RESTARTED
     Route: 048
     Dates: start: 20080220
  5. BACTRIM [Interacting]
     Indication: ANTIFUNGAL PROPHYLAXIS
     Route: 048
     Dates: start: 20080220, end: 20080101
  6. NEUPOGEN [Concomitant]
     Indication: NEUTROPENIA
     Dosage: 85.7143MCG(300 MCG 2 IN 1 W)
     Route: 058
     Dates: start: 20080310, end: 20080320
  7. AZITHROMYCIN [Concomitant]
     Indication: OPPORTUNISTIC INFECTION PROPHYLAXIS
     Dosage: 171.4286 MG(1200 MG 1 IN 1 W). STOPPED DUE TO EVENT AND RESTARTED
     Route: 048
     Dates: start: 20080220
  8. ZOFRAN [Concomitant]
     Indication: NAUSEA
     Route: 048
     Dates: start: 20080220
  9. KLONOPIN [Concomitant]
     Indication: ANXIETY
     Route: 048
     Dates: start: 20080220

REACTIONS (2)
  - DRUG INTERACTION [None]
  - RENAL TUBULAR NECROSIS [None]
